FAERS Safety Report 6678732-4 (Version None)
Quarter: 2010Q2

REPORT INFORMATION
  Report Type: 
  Country: None (occurrence: None)
  Receive Date: 20100413
  Receipt Date: 20100401
  Transmission Date: 20101027
  Serious: Yes (Other)
  Sender: FDA-Public Use
  Company Number: JP-PFIZER INC-2010043143

PATIENT
  Age: 73 Year
  Sex: Female

DRUGS (2)
  1. SULPERAZON [Suspect]
     Dosage: 1 G, 3X/DAY
     Route: 042
     Dates: end: 20100401
  2. DRUG, UNSPECIFIED [Concomitant]

REACTIONS (1)
  - RENAL FAILURE ACUTE [None]
